FAERS Safety Report 17481316 (Version 1)
Quarter: 2020Q1

REPORT INFORMATION
  Report Type: Spontaneous
  Country: US (occurrence: US)
  Receive Date: 20200302
  Receipt Date: 20200302
  Transmission Date: 20200409
  Serious: Yes (Hospitalization, Other)
  Sender: FDA-Public Use
  Company Number: US-AUROBINDO-AUR-APL-2020-010077

PATIENT
  Age: 55 Year
  Sex: Male
  Weight: 117 kg

DRUGS (15)
  1. KETAMINE [Suspect]
     Active Substance: KETAMINE
     Dosage: 50 MILLIGRAM, EVERY HOUR (0.43MG/KG/H)
     Route: 042
  2. METHADONE [Suspect]
     Active Substance: METHADONE HYDROCHLORIDE
     Indication: COMPLEX REGIONAL PAIN SYNDROME
     Dosage: 30 MILLIGRAM, 3 TIMES A DAY
     Route: 048
  3. OXYCODONE [Suspect]
     Active Substance: OXYCODONE
     Indication: WITHDRAWAL SYNDROME
     Dosage: 5 MILLIGRAM, EVERY FOUR HOUR
     Route: 065
  4. KETAMINE [Suspect]
     Active Substance: KETAMINE
     Dosage: 70 MILLIGRAM, EVERY HOUR (0.6 MG/KG/H)
     Route: 042
  5. KETAMINE [Suspect]
     Active Substance: KETAMINE
     Dosage: UNK (REDUCED BY 50 PERCENT)
     Route: 065
  6. MORPHINE [Concomitant]
     Active Substance: MORPHINE
     Indication: COMPLEX REGIONAL PAIN SYNDROME
     Dosage: 300 MILLIGRAM EQUIVALENT
     Route: 048
  7. CLONIDINE. [Concomitant]
     Active Substance: CLONIDINE
     Indication: ADVERSE DRUG REACTION
     Dosage: 0.3 MILLIGRAM
     Route: 065
  8. ACETAMINOPHEN. [Concomitant]
     Active Substance: ACETAMINOPHEN
     Indication: PRODUCT USED FOR UNKNOWN INDICATION
     Dosage: UNK
     Route: 065
  9. HYDROMORPHONE [Suspect]
     Active Substance: HYDROMORPHONE
     Indication: COMPLEX REGIONAL PAIN SYNDROME
     Dosage: 8 MILLIGRAM, EVERY FOUR HOUR
     Route: 048
  10. HYDROMORPHONE [Suspect]
     Active Substance: HYDROMORPHONE
     Dosage: 2.4 MILLIGRAM ON DAY 1
     Route: 042
  11. KETAMINE [Suspect]
     Active Substance: KETAMINE
     Indication: WITHDRAWAL SYNDROME
     Dosage: 10 MILLIGRAM, EVERY HOUR (0.09 MG/KG/H)
     Route: 042
  12. KETAMINE [Suspect]
     Active Substance: KETAMINE
     Dosage: 35 MILLIGRAM, EVERY HOUR (0.3 MG/KG/H)
     Route: 042
  13. PREGABALIN. [Concomitant]
     Active Substance: PREGABALIN
     Indication: PRODUCT USED FOR UNKNOWN INDICATION
     Dosage: UNK
     Route: 065
  14. LORAZEPAM. [Concomitant]
     Active Substance: LORAZEPAM
     Indication: ADVERSE DRUG REACTION
     Dosage: 0.5 MILLIGRAM, FOUR TIMES/DAY
     Route: 065
  15. IBUPROFEN. [Concomitant]
     Active Substance: IBUPROFEN
     Indication: PRODUCT USED FOR UNKNOWN INDICATION
     Dosage: UNK
     Route: 065

REACTIONS (12)
  - Burning sensation [Unknown]
  - Anxiety [Recovered/Resolved]
  - Vomiting [Unknown]
  - Toxicity to various agents [Unknown]
  - Hyperhidrosis [Recovered/Resolved]
  - Vision blurred [Unknown]
  - Allodynia [Unknown]
  - Hallucination, auditory [Unknown]
  - Nausea [Unknown]
  - Hyperaesthesia [Unknown]
  - Hallucination, visual [Unknown]
  - Drug withdrawal syndrome [Unknown]
